FAERS Safety Report 23921953 (Version 1)
Quarter: 2024Q2

REPORT INFORMATION
  Report Type: Spontaneous
  Country: IN (occurrence: IN)
  Receive Date: 20240531
  Receipt Date: 20240531
  Transmission Date: 20240716
  Serious: Yes (Other)
  Sender: FDA-Public Use
  Company Number: IN-ABBVIE-5780011

PATIENT
  Age: 48 Year
  Sex: Female

DRUGS (5)
  1. TIMOLOL [Suspect]
     Active Substance: TIMOLOL
     Indication: Glaucoma
     Route: 061
  2. BRIMONIDINE [Suspect]
     Active Substance: BRIMONIDINE TARTRATE
     Indication: Glaucoma
     Route: 061
  3. CIPLOX-D [Concomitant]
     Indication: Product used for unknown indication
     Dosage: BOTH EYES
     Route: 061
  4. ACETAZOLAMIDE [Concomitant]
     Active Substance: ACETAZOLAMIDE
     Indication: Intraocular pressure test abnormal
     Dosage: TIME INTERVAL: 0.33333333 DAYS
     Route: 048
  5. ATROPINE [Concomitant]
     Active Substance: ATROPINE\ATROPINE SULFATE
     Indication: Product used for unknown indication
     Dosage: TIME INTERVAL: 0.33333333 DAYS: 1%?BOTH EYES
     Route: 061

REACTIONS (1)
  - Intraocular pressure increased [Recovered/Resolved]
